FAERS Safety Report 10187347 (Version 3)
Quarter: 2014Q2

REPORT INFORMATION
  Report Type: Spontaneous
  Country: US (occurrence: US)
  Receive Date: 20140522
  Receipt Date: 20140613
  Transmission Date: 20141212
  Serious: No
  Sender: FDA-Public Use
  Company Number: US-PFIZER INC-2014138520

PATIENT
  Age: 53 Year
  Sex: Male
  Weight: 92.06 kg

DRUGS (4)
  1. VIAGRA [Suspect]
     Indication: ERECTILE DYSFUNCTION
     Dosage: 100 MG, AS NEEDED
     Route: 048
     Dates: start: 201405
  2. VIAGRA [Suspect]
     Dosage: 50 MG, (SPLITTING IT INTO HALF)
     Route: 048
     Dates: start: 201405
  3. VIAGRA [Suspect]
     Dosage: UNK, AS NEEDED
     Route: 048
  4. MOBIC [Concomitant]
     Indication: ARTHRALGIA
     Dosage: UNK

REACTIONS (3)
  - Feeling hot [Unknown]
  - Flushing [Unknown]
  - Drug ineffective [Unknown]
